FAERS Safety Report 6317424-8 (Version None)
Quarter: 2009Q3

REPORT INFORMATION
  Report Type: 
  Country: None (occurrence: None)
  Receive Date: 20090821
  Receipt Date: 20090811
  Transmission Date: 20100115
  Serious: Yes (Hospitalization)
  Sender: FDA-Public Use
  Company Number: US-ELI_LILLY_AND_COMPANY-US200905002111

PATIENT
  Sex: Male

DRUGS (18)
  1. BYETTA [Suspect]
     Dosage: UNK, UNKNOWN
     Dates: start: 20070220, end: 20070517
  2. INSULIN [Concomitant]
     Dosage: UNK, UNKNOWN
  3. GLUCOTROL [Concomitant]
     Dosage: 5 MG, 2/D
  4. LIPITOR [Concomitant]
     Dosage: 10 MG, DAILY (1/D)
  5. ENALAPRIL MALEATE [Concomitant]
     Dosage: 5 MG, DAILY (1/D)
  6. FUROSEMIDE [Concomitant]
     Dosage: 40 MG, DAILY (1/D)
  7. SINEQUAN [Concomitant]
     Dosage: 50 MG, DAILY (1/D)
  8. ALLOPURINOL [Concomitant]
     Dosage: UNK, UNKNOWN
  9. ALBUTEROL [Concomitant]
     Dosage: UNK, UNKNOWN
  10. IRON [Concomitant]
     Dosage: UNK, UNKNOWN
  11. QVAR 40 [Concomitant]
     Dosage: UNK, UNKNOWN
  12. OMEPRAZOLE [Concomitant]
     Dosage: UNK, UNKNOWN
  13. LANTUS [Concomitant]
     Dosage: UNK, UNKNOWN
  14. AVANDIA [Concomitant]
     Dosage: UNK, UNKNOWN
  15. HYDROCODONE [Concomitant]
     Dosage: UNK, UNKNOWN
  16. GLUCOPHAGE [Concomitant]
     Dosage: 1000 UNK, 2/D
  17. ASPIRIN [Concomitant]
     Dosage: 81 MG, DAILY (1/D)
  18. ZANTAC [Concomitant]
     Dosage: 150 UNK, 2/D

REACTIONS (6)
  - ANAEMIA [None]
  - BLOOD GLUCOSE DECREASED [None]
  - DEHYDRATION [None]
  - OFF LABEL USE [None]
  - RENAL FAILURE [None]
  - VOMITING [None]
